FAERS Safety Report 15431310 (Version 1)
Quarter: 2018Q3

REPORT INFORMATION
  Report Type: Spontaneous
  Country: US (occurrence: US)
  Receive Date: 20180921
  Receipt Date: 20180921
  Transmission Date: 20181010
  Serious: Yes (Life-Threatening, Disabling)
  Sender: FDA-Public Use
  Company Number: None

PATIENT
  Age: 47 Year
  Sex: Male
  Weight: 106.65 kg

DRUGS (1)
  1. VALSARTAN 80MG TAB ? GENERIC FOR DIOVAN 80MG TAB [Suspect]
     Active Substance: VALSARTAN
     Indication: BLOOD PRESSURE MANAGEMENT
     Dosage: ?          QUANTITY:1 TABLET(S);?
     Route: 048
     Dates: start: 20120913, end: 20180726

REACTIONS (1)
  - Adenocarcinoma gastric [None]

NARRATIVE: CASE EVENT DATE: 20180420
